FAERS Safety Report 22221046 (Version 2)
Quarter: 2023Q2

REPORT INFORMATION
  Report Type: Report from Study
  Country: MX (occurrence: MX)
  Receive Date: 20230418
  Receipt Date: 20230526
  Transmission Date: 20230722
  Serious: Yes (Life-Threatening, Hospitalization, Other)
  Sender: FDA-Public Use
  Company Number: MX-002147023-NVSC2023MX084690

PATIENT
  Age: 12 Year
  Sex: Male
  Weight: 69 kg

DRUGS (3)
  1. ELTROMBOPAG OLAMINE [Suspect]
     Active Substance: ELTROMBOPAG OLAMINE
     Indication: Immune thrombocytopenia
     Dosage: 1 DOSAGE FORM, Q12H (STRENGTH: 25 MG)
     Route: 048
     Dates: start: 202107, end: 202109
  2. ELTROMBOPAG OLAMINE [Suspect]
     Active Substance: ELTROMBOPAG OLAMINE
     Dosage: 1 DOSAGE FORM, QD (STRENGTH: 50 MG)
     Route: 048
     Dates: start: 202301, end: 202304
  3. ELTROMBOPAG OLAMINE [Suspect]
     Active Substance: ELTROMBOPAG OLAMINE
     Dosage: 1 DOSAGE FORM, Q12H (STRENGTH: 25 MG)
     Route: 048
     Dates: start: 202304

REACTIONS (7)
  - Platelet count decreased [Unknown]
  - Petechiae [Unknown]
  - Disease recurrence [Not Recovered/Not Resolved]
  - Vascular rupture [Unknown]
  - Weight increased [Not Recovered/Not Resolved]
  - Antiphospholipid syndrome [Recovering/Resolving]
  - Hyperphagia [Unknown]

NARRATIVE: CASE EVENT DATE: 20230101
